FAERS Safety Report 7009827-3 (Version None)
Quarter: 2010Q3

REPORT INFORMATION
  Report Type: 
  Country: None (occurrence: None)
  Receive Date: 20100923
  Receipt Date: 20100915
  Transmission Date: 20110219
  Serious: Yes (Hospitalization)
  Sender: FDA-Public Use
  Company Number: DE-ROCHE-726120

PATIENT
  Sex: Male
  Weight: 100 kg

DRUGS (7)
  1. ROACTEMRA [Suspect]
     Indication: RHEUMATOID ARTHRITIS
     Route: 042
     Dates: start: 20100128, end: 20100128
  2. ROACTEMRA [Suspect]
     Route: 042
     Dates: start: 20100420, end: 20100420
  3. ROACTEMRA [Suspect]
     Route: 042
     Dates: start: 20100518, end: 20100518
  4. ROACTEMRA [Suspect]
     Route: 042
     Dates: start: 20100615, end: 20100615
  5. ROACTEMRA [Suspect]
     Route: 042
     Dates: start: 20100817
  6. CORTISON [Concomitant]
  7. PREDNISOLON [Concomitant]
     Indication: RHEUMATOID ARTHRITIS
     Route: 048

REACTIONS (4)
  - BURSITIS INFECTIVE STAPHYLOCOCCAL [None]
  - FISTULA [None]
  - JOINT SWELLING [None]
  - PYREXIA [None]
